FAERS Safety Report 5205901-2 (Version None)
Quarter: 2007Q1

REPORT INFORMATION
  Report Type: 
  Country: None (occurrence: None)
  Receive Date: 20070111
  Receipt Date: 20070104
  Transmission Date: 20070707
  Serious: Yes (Hospitalization, Other)
  Sender: FDA-Public Use
  Company Number: 2007UW00407

PATIENT
  Sex: Female

DRUGS (4)
  1. NOLVADEX [Suspect]
     Indication: BREAST CANCER
     Route: 048
     Dates: end: 20061213
  2. NOLVADEX [Suspect]
     Route: 048
     Dates: start: 20061214, end: 20061214
  3. ZD1839 CODE NOT BROKEN [Suspect]
     Indication: BREAST CANCER
     Route: 048
     Dates: end: 20061213
  4. ZD1839 CODE NOT BROKEN [Suspect]
     Route: 048
     Dates: start: 20061214, end: 20061214

REACTIONS (1)
  - ENDOMETRIAL DISORDER [None]
